FAERS Safety Report 7402684-2 (Version None)
Quarter: 2011Q2

REPORT INFORMATION
  Report Type: 
  Country: None (occurrence: None)
  Receive Date: 20110408
  Receipt Date: 20110406
  Transmission Date: 20111010
  Serious: Yes (Other)
  Sender: FDA-Public Use
  Company Number: ES-ABBOTT-11P-144-0717015-00

PATIENT
  Age: 34 Year
  Sex: Female

DRUGS (3)
  1. KALETRA [Suspect]
     Indication: PREGNANCY
     Dosage: 400/100 MG
     Route: 048
     Dates: start: 20110111, end: 20110331
  2. TRUVADA [Concomitant]
     Indication: HIV INFECTION
     Dosage: 245/200 MG /DAY
     Route: 048
     Dates: start: 20110111, end: 20110331
  3. KALETRA [Suspect]
     Indication: HIV INFECTION

REACTIONS (1)
  - ABORTION INDUCED [None]
